FAERS Safety Report 18452849 (Version 1)
Quarter: 2020Q4

REPORT INFORMATION
  Report Type: Spontaneous
  Country: CA (occurrence: CA)
  Receive Date: 20201102
  Receipt Date: 20201102
  Transmission Date: 20210114
  Serious: Yes (Other)
  Sender: FDA-Public Use
  Company Number: CA-PFIZER INC-2020421792

PATIENT
  Age: 51 Year
  Sex: Female

DRUGS (3)
  1. SEPTRA [Concomitant]
     Active Substance: SULFAMETHOXAZOLE\TRIMETHOPRIM
     Dosage: UNK
     Route: 065
  2. PREDNISONE. [Concomitant]
     Active Substance: PREDNISONE
     Dosage: 25 MG
     Route: 065
  3. METHOTREXATE SODIUM. [Suspect]
     Active Substance: METHOTREXATE SODIUM
     Indication: GRANULOMATOSIS WITH POLYANGIITIS
     Dosage: UNK
     Route: 065

REACTIONS (8)
  - Haemorrhage [Unknown]
  - Renal impairment [Recovered/Resolved]
  - Off label use [Unknown]
  - Laryngeal stenosis [Recovering/Resolving]
  - Product use in unapproved indication [Unknown]
  - Dyspnoea [Recovering/Resolving]
  - Nasal disorder [Unknown]
  - Haematuria [Recovered/Resolved]
